FAERS Safety Report 5268683-4 (Version None)
Quarter: 2007Q1

REPORT INFORMATION
  Report Type: 
  Country: None (occurrence: None)
  Receive Date: 20061213
  Receipt Date: 20040909
  Transmission Date: 20070707
  Serious: Yes (Other)
  Sender: FDA-Public Use
  Company Number: 2004UW19018

PATIENT
  Age: 60 Year
  Sex: Male
  Weight: 83.9154 kg

DRUGS (16)
  1. IRESSA [Suspect]
     Indication: NON-SMALL CELL LUNG CANCER
  2. ALPRAZOLAM [Concomitant]
  3. TYLENOL [Concomitant]
  4. CURCUMEN TUMERIC [Concomitant]
  5. WOBENZYME [Concomitant]
  6. QUERCETIN [Concomitant]
  7. VITAMIN A [Concomitant]
  8. MAITAKE EXTRACT D [Concomitant]
  9. COENZYME Q10 [Concomitant]
  10. FISH OIL DERIVATIVE [Concomitant]
  11. MULTIVITAMINS PLUS IRON [Concomitant]
  12. MODIFIED CITRUS PECTIN [Concomitant]
  13. CALCIUM [Concomitant]
  14. VITAMIN B COMPLEX CAP [Concomitant]
  15. PSEUDOEPHEDRINE HCL [Concomitant]
  16. BENADRYL [Concomitant]

REACTIONS (1)
  - PLEURAL EFFUSION [None]
